FAERS Safety Report 4584242-0 (Version None)
Quarter: 2005Q1

REPORT INFORMATION
  Report Type: 
  Country: None (occurrence: None)
  Receive Date: 20050125
  Receipt Date: 20041027
  Transmission Date: 20050727
  Serious: No
  Sender: FDA-Public Use
  Company Number: USA041082389

PATIENT
  Age: 65 Year
  Sex: Female
  Weight: 64 kg

DRUGS (5)
  1. FORTEO [Suspect]
     Indication: OSTEOPOROSIS
     Dosage: 20 UG/1 DAY
     Dates: start: 20040701
  2. MULTIVITAMIN [Concomitant]
  3. CALCIUM GLUCONATE [Concomitant]
  4. ASPIRIN [Concomitant]
  5. IMITREX [Concomitant]

REACTIONS (1)
  - WEIGHT DECREASED [None]
